FAERS Safety Report 10527862 (Version 1)
Quarter: 2014Q4

REPORT INFORMATION
  Report Type: Spontaneous
  Country: US (occurrence: None)
  Receive Date: 20141017
  Receipt Date: 20141017
  Transmission Date: 20150528
  Serious: No
  Sender: FDA-Public Use
  Company Number: None

PATIENT
  Age: 30 Year
  Sex: Female
  Weight: 84.37 kg

DRUGS (1)
  1. IBUPROFEN. [Suspect]
     Active Substance: IBUPROFEN
     Indication: PAIN
     Dosage: 1 PILL FOUR TIMES DAILY
     Dates: start: 20141006, end: 20141014

REACTIONS (4)
  - Dysuria [None]
  - Rash papular [None]
  - Vulvovaginal pain [None]
  - Vulvovaginal swelling [None]

NARRATIVE: CASE EVENT DATE: 20141006
